FAERS Safety Report 10195991 (Version 1)
Quarter: 2014Q2

REPORT INFORMATION
  Report Type: Spontaneous
  Country: GB (occurrence: None)
  Receive Date: 20140521
  Receipt Date: 20140521
  Transmission Date: 20141212
  Serious: Yes (Hospitalization)
  Sender: FDA-Public Use
  Company Number: 2014P1004377

PATIENT
  Age: 16 Month
  Sex: Male

DRUGS (12)
  1. CIPROFLOXACIN [Suspect]
     Indication: SKIN INFECTION
     Dates: start: 201402, end: 2014
  2. CIPROFLOXACIN [Suspect]
     Indication: BACTERIAL INFECTION
     Dates: start: 201402, end: 2014
  3. DOMPERIDONE [Concomitant]
  4. FOLIC ACID [Concomitant]
  5. IBUPROFEN [Concomitant]
  6. MORPHINE [Concomitant]
  7. PARACETAMOL [Concomitant]
  8. PHENOBARBITAL [Concomitant]
  9. VITAMIN D [Concomitant]
  10. VITAMIN E [Concomitant]
  11. VITAMIN K [Concomitant]
  12. RANITIDINE [Concomitant]

REACTIONS (3)
  - Colitis [None]
  - Liver disorder [None]
  - Flatulence [None]
